FAERS Safety Report 25399245 (Version 2)
Quarter: 2025Q3

REPORT INFORMATION
  Report Type: Spontaneous
  Country: US (occurrence: US)
  Receive Date: 20250605
  Receipt Date: 20250814
  Transmission Date: 20251021
  Serious: No
  Sender: STALLERGENES
  Company Number: US-STALCOR-2025-AER-02022

PATIENT
  Age: 12 Year
  Sex: Female

DRUGS (1)
  1. PALFORZIA [Suspect]
     Active Substance: PEANUT
     Indication: Food allergy
     Dosage: 6X1MG: MIX CONTENTS OF CAPSULES WELL WITH SEMISOLID FOOD AS DIRECTED AND CONSUME ONCE DAILY AT APPRO
     Route: 048

REACTIONS (2)
  - Dyspepsia [Recovered/Resolved]
  - Product dose omission issue [Recovered/Resolved]

NARRATIVE: CASE EVENT DATE: 20250501
